FAERS Safety Report 17338473 (Version 1)
Quarter: 2020Q1

REPORT INFORMATION
  Report Type: Spontaneous
  Country: US (occurrence: US)
  Receive Date: 20200129
  Receipt Date: 20200129
  Transmission Date: 20200409
  Serious: No
  Sender: FDA-Public Use
  Company Number: US-AMGEN INC.-USASP2020013212

PATIENT
  Age: 45 Year
  Sex: Female

DRUGS (6)
  1. TRAZODONE [Concomitant]
     Active Substance: TRAZODONE HYDROCHLORIDE
     Indication: SLEEP DISORDER
     Dosage: 200 MILLIGRAM ( (2 X100MG TABLETS)), QD
  2. REXULTI [Concomitant]
     Active Substance: BREXPIPRAZOLE
     Indication: ANXIETY
     Dosage: 1.5 MILLIGRAM, QD
  3. AIMOVIG [Suspect]
     Active Substance: ERENUMAB-AOOE
     Indication: MIGRAINE
     Dosage: 140 MILLIGRAM
     Route: 065
     Dates: start: 20200120
  4. ANTABUSE [Concomitant]
     Active Substance: DISULFIRAM
     Dosage: 250 MILLIGRAM, QD
  5. VIIBRYD [Concomitant]
     Active Substance: VILAZODONE HYDROCHLORIDE
     Indication: DEPRESSION
     Dosage: 60 MILLIGRAM, QD
  6. SIMVASTATIN. [Concomitant]
     Active Substance: SIMVASTATIN
     Indication: BLOOD CHOLESTEROL INCREASED
     Dosage: 20 MILLIGRAM, QD

REACTIONS (2)
  - Injection site bruising [Not Recovered/Not Resolved]
  - Injection site haemorrhage [Unknown]

NARRATIVE: CASE EVENT DATE: 20200120
